FAERS Safety Report 12305120 (Version 1)
Quarter: 2016Q2

REPORT INFORMATION
  Report Type: Spontaneous
  Country: US (occurrence: None)
  Receive Date: 20160425
  Receipt Date: 20160425
  Transmission Date: 20160815
  Serious: No
  Sender: FDA-Public Use
  Company Number: None

PATIENT
  Age: 71 Year
  Sex: Female

DRUGS (10)
  1. PREMARIN [Concomitant]
     Active Substance: ESTROGENS, CONJUGATED
  2. METFORMIN [Concomitant]
     Active Substance: METFORMIN HYDROCHLORIDE
  3. LETROZOLE. [Concomitant]
     Active Substance: LETROZOLE
  4. GLUTAMINE [Concomitant]
     Active Substance: GLUTAMINE
  5. LEUTEIN [Concomitant]
  6. LOVOXYL [Concomitant]
  7. IBRANCE [Suspect]
     Active Substance: PALBOCICLIB
     Indication: SKIN CANCER
     Route: 048
     Dates: start: 20151002
  8. PROBIOTIC [Concomitant]
     Active Substance: PROBIOTICS NOS
  9. IBRANCE [Suspect]
     Active Substance: PALBOCICLIB
     Indication: BONE CANCER
     Route: 048
     Dates: start: 20151002
  10. IBRANCE [Suspect]
     Active Substance: PALBOCICLIB
     Indication: BREAST CANCER
     Route: 048
     Dates: start: 20151002

REACTIONS (1)
  - Alopecia [None]

NARRATIVE: CASE EVENT DATE: 201601
